FAERS Safety Report 15429058 (Version 1)
Quarter: 2018Q3

REPORT INFORMATION
  Report Type: Spontaneous
  Country: US (occurrence: US)
  Receive Date: 20180920
  Receipt Date: 20180920
  Transmission Date: 20181010
  Serious: Yes (Disabling)
  Sender: FDA-Public Use
  Company Number: None

PATIENT
  Age: 7 Year
  Sex: Female
  Weight: 27 kg

DRUGS (3)
  1. MONTELUKAST [Suspect]
     Active Substance: MONTELUKAST SODIUM
     Indication: ASTHMA
     Dosage: ?          QUANTITY:1 TABLET(S);?
     Route: 048
     Dates: start: 20151120, end: 20180907
  2. MULTIVITAMIN GUMMIES [Concomitant]
  3. CHILDREN CLARITIN ALLERGY [Concomitant]
     Active Substance: LORATADINE

REACTIONS (8)
  - Negative thoughts [None]
  - Mental disorder [None]
  - Attention deficit/hyperactivity disorder [None]
  - Psychomotor hyperactivity [None]
  - Abnormal behaviour [None]
  - Anxiety [None]
  - Insomnia [None]
  - Nightmare [None]

NARRATIVE: CASE EVENT DATE: 20180701
